FAERS Safety Report 23128492 (Version 1)
Quarter: 2023Q4

REPORT INFORMATION
  Report Type: Report from Study
  Country: US (occurrence: US)
  Receive Date: 20231031
  Receipt Date: 20231031
  Transmission Date: 20240109
  Serious: Yes (Hospitalization, Other)
  Sender: FDA-Public Use
  Company Number: US-ABBVIE-5467747

PATIENT
  Sex: Male

DRUGS (1)
  1. SKYRIZI [Suspect]
     Active Substance: RISANKIZUMAB-RZAA
     Indication: Psoriasis
     Route: 058
     Dates: start: 20230420

REACTIONS (4)
  - Vision blurred [Not Recovered/Not Resolved]
  - Diabetes mellitus [Unknown]
  - Diplopia [Unknown]
  - Glaucoma [Unknown]

NARRATIVE: CASE EVENT DATE: 20230101
